FAERS Safety Report 12426427 (Version 4)
Quarter: 2020Q2

REPORT INFORMATION
  Report Type: Spontaneous
  Country: US (occurrence: US)
  Receive Date: 20160601
  Receipt Date: 20200622
  Transmission Date: 20200713
  Serious: Yes (Death, Hospitalization)
  Sender: FDA-Public Use
  Company Number: US-JNJFOC-20160528622

PATIENT
  Age: 67 Year
  Sex: Male
  Weight: 74.23 kg

DRUGS (1)
  1. XARELTO [Suspect]
     Active Substance: RIVAROXABAN
     Indication: PULMONARY EMBOLISM
     Route: 048
     Dates: start: 20150128, end: 20150202

REACTIONS (2)
  - Ischaemic stroke [Unknown]
  - Lung cancer metastatic [Fatal]

NARRATIVE: CASE EVENT DATE: 201501
